FAERS Safety Report 5636628-0 (Version None)
Quarter: 2008Q1

REPORT INFORMATION
  Report Type: 
  Country: None (occurrence: None)
  Receive Date: 20080219
  Receipt Date: 20080219
  Transmission Date: 20080703
  Serious: No
  Sender: FDA-Public Use
  Company Number: None

PATIENT
  Age: 36 Year
  Sex: Female
  Weight: 56.6996 kg

DRUGS (1)
  1. DEPO-PROVERA [Suspect]
     Indication: CONTRACEPTION
     Dosage: EVERY 12 WEEKS  IM
     Route: 030
     Dates: start: 19900101, end: 20070701

REACTIONS (7)
  - BREAST ENLARGEMENT [None]
  - BREAST PAIN [None]
  - HYPERSENSITIVITY [None]
  - LYMPHADENOPATHY [None]
  - MOOD SWINGS [None]
  - OSTEOPENIA [None]
  - SLEEP DISORDER [None]
